FAERS Safety Report 6339027-1 (Version None)
Quarter: 2009Q3

REPORT INFORMATION
  Report Type: 
  Country: None (occurrence: None)
  Receive Date: 20090903
  Receipt Date: 20090901
  Transmission Date: 20100115
  Serious: Yes (Other)
  Sender: FDA-Public Use
  Company Number: DE-RB-018979-09

PATIENT

DRUGS (1)
  1. SUBOXONE [Suspect]
     Indication: DRUG USE FOR UNKNOWN INDICATION
     Dosage: INJECTED SUBOXONE(DETAILS UNKNOWN)

REACTIONS (5)
  - ARTHRITIS [None]
  - INCORRECT ROUTE OF DRUG ADMINISTRATION [None]
  - MYOCARDITIS [None]
  - SEPSIS [None]
  - SUBSTANCE ABUSE [None]
